FAERS Safety Report 13398928 (Version 2)
Quarter: 2017Q2

REPORT INFORMATION
  Report Type: Spontaneous
  Country: US (occurrence: US)
  Receive Date: 20170404
  Receipt Date: 20170412
  Transmission Date: 20170830
  Serious: Yes (Other)
  Sender: FDA-Public Use
  Company Number: US-CONCORDIA PHARMACEUTICALS INC.-GSH201703-002046

PATIENT
  Age: 15 Year
  Sex: Female

DRUGS (1)
  1. CLONIDINE. [Suspect]
     Active Substance: CLONIDINE

REACTIONS (5)
  - Intentional overdose [Unknown]
  - Bradycardia [Unknown]
  - Atrioventricular block second degree [Recovered/Resolved]
  - Atrioventricular block [Recovered/Resolved]
  - Somnolence [Unknown]
